FAERS Safety Report 21189127 (Version 4)
Quarter: 2022Q3

REPORT INFORMATION
  Report Type: Spontaneous
  Country: JP (occurrence: JP)
  Receive Date: 20220809
  Receipt Date: 20220925
  Transmission Date: 20221026
  Serious: Yes (Other)
  Sender: FDA-Public Use
  Company Number: JP-ROCHE-3154531

PATIENT
  Age: 1 Year
  Sex: Male
  Weight: 9.15 kg

DRUGS (2)
  1. HEMLIBRA [Suspect]
     Active Substance: EMICIZUMAB-KXWH
     Indication: Haemophilia A without inhibitors
     Route: 058
     Dates: start: 20220324, end: 20220628
  2. HEMLIBRA [Suspect]
     Active Substance: EMICIZUMAB-KXWH
     Dosage: MOST RECENT DOSE ON 09/AUG/2022
     Route: 058
     Dates: start: 20220712

REACTIONS (6)
  - Haemarthrosis [Recovering/Resolving]
  - Activated partial thromboplastin time prolonged [Unknown]
  - Contusion [Unknown]
  - Wound [Unknown]
  - Bleeding time prolonged [Unknown]
  - Therapeutic response decreased [Unknown]

NARRATIVE: CASE EVENT DATE: 20220601
